FAERS Safety Report 10877803 (Version 1)
Quarter: 2015Q1

REPORT INFORMATION
  Report Type: Spontaneous
  Country: US (occurrence: None)
  Receive Date: 20150224
  Receipt Date: 20150224
  Transmission Date: 20150721
  Serious: Yes (Hospitalization)
  Sender: FDA-Public Use
  Company Number: 2747120

PATIENT
  Sex: Male

DRUGS (1)
  1. LIDOCAINE HCL [Suspect]
     Active Substance: LIDOCAINE HYDROCHLORIDE
     Indication: JOINT INJECTION
     Dates: start: 20150122

REACTIONS (4)
  - Muscular weakness [None]
  - Procedural complication [None]
  - Wrong technique in drug usage process [None]
  - Injection site abscess [None]

NARRATIVE: CASE EVENT DATE: 20150122
